FAERS Safety Report 13445502 (Version 2)
Quarter: 2017Q2

REPORT INFORMATION
  Report Type: Spontaneous
  Country: BR (occurrence: BR)
  Receive Date: 20170415
  Receipt Date: 20170505
  Transmission Date: 20170830
  Serious: Yes (Death, Life-Threatening, Hospitalization, Other)
  Sender: FDA-Public Use
  Company Number: BR-ACCORD-050207

PATIENT
  Age: 73 Year
  Sex: Male

DRUGS (3)
  1. MYCOPHENOLIC ACID. [Suspect]
     Active Substance: MYCOPHENOLIC ACID
     Indication: RENAL TRANSPLANT
     Dosage: 750 MG PO TWICE A DAY
     Route: 048
  2. SIROLIMUS. [Suspect]
     Active Substance: SIROLIMUS
     Indication: RENAL TRANSPLANT
     Dosage: 2 MG PO DAILY
     Route: 048
  3. PREDNISONE. [Suspect]
     Active Substance: PREDNISONE
     Indication: RENAL TRANSPLANT
     Dosage: 5 MG PO EVERY OTHER DAY
     Route: 048

REACTIONS (10)
  - Cardiac arrest [Fatal]
  - Salmonellosis [Unknown]
  - Ileus [Unknown]
  - Condition aggravated [Not Recovered/Not Resolved]
  - Renal impairment [Unknown]
  - Diarrhoea [Unknown]
  - Hypokalaemia [Unknown]
  - Sepsis [Fatal]
  - Metabolic acidosis [Unknown]
  - Hyponatraemia [Unknown]
